FAERS Safety Report 18928433 (Version 1)
Quarter: 2021Q1

REPORT INFORMATION
  Report Type: Spontaneous
  Country: US (occurrence: US)
  Receive Date: 20210223
  Receipt Date: 20210223
  Transmission Date: 20210420
  Serious: No
  Sender: FDA-Public Use
  Company Number: None

PATIENT
  Age: 66 Year
  Sex: Male
  Weight: 90 kg

DRUGS (8)
  1. JAKAFI [Suspect]
     Active Substance: RUXOLITINIB
     Indication: MYELOFIBROSIS
     Route: 048
  2. IRON [Concomitant]
     Active Substance: IRON
  3. MULTIVITAMIN [Concomitant]
     Active Substance: VITAMINS
  4. DILTIAZEM. [Concomitant]
     Active Substance: DILTIAZEM
  5. ASPIRIN. [Concomitant]
     Active Substance: ASPIRIN
  6. FISH OIL [Concomitant]
     Active Substance: FISH OIL
  7. GLUCOSAMINE [Concomitant]
     Active Substance: GLUCOSAMINE
  8. VITAMIN C [Concomitant]
     Active Substance: ASCORBIC ACID

REACTIONS (4)
  - Haemoglobin decreased [None]
  - Epistaxis [None]
  - COVID-19 [None]
  - Nasal dryness [None]
